FAERS Safety Report 20146520 (Version 9)
Quarter: 2022Q1

REPORT INFORMATION
  Report Type: Report from Study
  Country: JP (occurrence: JP)
  Receive Date: 20211203
  Receipt Date: 20220321
  Transmission Date: 20220423
  Serious: Yes (Death, Hospitalization, Disabling)
  Sender: FDA-Public Use
  Company Number: JP-ABBVIE-21K-087-4185140-00

PATIENT
  Age: 69 Year
  Sex: Male
  Weight: 63.6 kg

DRUGS (13)
  1. VENCLEXTA [Suspect]
     Active Substance: VENETOCLAX
     Indication: Acute myeloid leukaemia
     Dosage: 2 COURSES
     Route: 048
     Dates: start: 20210506, end: 202105
  2. VENCLEXTA [Suspect]
     Active Substance: VENETOCLAX
     Route: 048
     Dates: start: 20210508, end: 20210508
  3. VENCLEXTA [Suspect]
     Active Substance: VENETOCLAX
     Route: 048
     Dates: start: 20210509, end: 202105
  4. VENCLEXTA [Suspect]
     Active Substance: VENETOCLAX
     Route: 048
     Dates: start: 20210515, end: 20210709
  5. VIDAZA [Suspect]
     Active Substance: AZACITIDINE
     Indication: Acute myeloid leukaemia
     Dosage: 2 COURSES
     Route: 050
     Dates: start: 20210506, end: 20210620
  6. RUXOLITINIB PHOSPHATE [Concomitant]
     Active Substance: RUXOLITINIB PHOSPHATE
     Indication: Acute myeloid leukaemia
     Dates: start: 20210716
  7. FLUCONAZOLE [Concomitant]
     Active Substance: FLUCONAZOLE
     Indication: Infection prophylaxis
     Route: 048
     Dates: start: 20210506, end: 20210514
  8. VORICONAZOLE [Concomitant]
     Active Substance: VORICONAZOLE
     Indication: Infection prophylaxis
     Route: 048
     Dates: start: 20210515
  9. LEVOFLOXACIN HEMIHYDRATE [Concomitant]
     Active Substance: LEVOFLOXACIN
     Indication: Infection prophylaxis
     Route: 048
     Dates: start: 20210526, end: 20210603
  10. FEBUXOSTAT [Concomitant]
     Active Substance: FEBUXOSTAT
     Indication: Prophylaxis
     Route: 048
     Dates: start: 20210505, end: 20210511
  11. AZACITIDINE [Concomitant]
     Active Substance: AZACITIDINE
     Indication: Acute myeloid leukaemia
     Dates: start: 20210506, end: 2021
  12. AZACITIDINE [Concomitant]
     Active Substance: AZACITIDINE
     Dates: start: 20210517, end: 20210523
  13. AZACITIDINE [Concomitant]
     Active Substance: AZACITIDINE
     Dates: start: 20210614

REACTIONS (5)
  - Respiratory failure [Fatal]
  - Pleural effusion [Fatal]
  - Anaemia [Not Recovered/Not Resolved]
  - Thrombocytopenia [Not Recovered/Not Resolved]
  - Pyrexia [Recovered/Resolved]

NARRATIVE: CASE EVENT DATE: 20210511
